FAERS Safety Report 6839957-8 (Version None)
Quarter: 2010Q3

REPORT INFORMATION
  Report Type: 
  Country: None (occurrence: None)
  Receive Date: 20100714
  Receipt Date: 20100625
  Transmission Date: 20110219
  Serious: Yes (Other)
  Sender: FDA-Public Use
  Company Number: ES-JNJFOC-20100701593

PATIENT
  Age: 56 Year
  Sex: Male

DRUGS (2)
  1. ZALDIAR [Suspect]
     Indication: CONTUSION
     Route: 048
  2. ENANTYUM [Suspect]
     Indication: CONTUSION
     Route: 048

REACTIONS (2)
  - FATIGUE [None]
  - LIVER INJURY [None]
